FAERS Safety Report 8523091-5 (Version None)
Quarter: 2012Q3

REPORT INFORMATION
  Report Type: 
  Country: None (occurrence: None)
  Receive Date: 20120720
  Receipt Date: 20120717
  Transmission Date: 20120928
  Serious: No
  Sender: FDA-Public Use
  Company Number: US-PFIZER INC-2012173554

PATIENT
  Sex: Male
  Weight: 81.633 kg

DRUGS (4)
  1. CYMBALTA [Suspect]
     Indication: ANXIETY
     Dosage: 60 MG, DAILY
     Dates: start: 20120601, end: 20120711
  2. ANDROGEL [Concomitant]
     Indication: BLOOD TESTOSTERONE DECREASED
     Dosage: TWO PUMPS, DAILY
  3. PRISTIQ [Suspect]
     Indication: ANXIETY
     Dosage: 50 MG, DAILY
     Dates: start: 20120712, end: 20120716
  4. LEXAPRO [Suspect]
     Indication: ANXIETY
     Dosage: 10 MG,DAILY
     Dates: end: 20120601

REACTIONS (3)
  - NIGHT SWEATS [None]
  - DIZZINESS [None]
  - NERVOUSNESS [None]
